FAERS Safety Report 10418351 (Version 3)
Quarter: 2014Q3

REPORT INFORMATION
  Report Type: Spontaneous
  Country: US (occurrence: None)
  Receive Date: 20140827
  Receipt Date: 20140908
  Transmission Date: 20150326
  Serious: Yes (Hospitalization, Other)
  Sender: FDA-Public Use
  Company Number: ADR-2014-01515

PATIENT
  Sex: Female

DRUGS (4)
  1. MACROBID [Suspect]
     Active Substance: NITROFURANTOIN\NITROFURANTOIN MONOHYDRATE
  2. DITROPAN XL [Suspect]
     Active Substance: OXYBUTYNIN CHLORIDE
  3. LIORESAL [Suspect]
     Active Substance: BACLOFEN
     Indication: MUSCLE SPASTICITY
  4. DULCOLAX [Suspect]
     Active Substance: BISACODYL OR DOCUSATE SODIUM

REACTIONS (4)
  - Infusion site cyst [None]
  - Back pain [None]
  - Device breakage [None]
  - Infusion site extravasation [None]
